FAERS Safety Report 9087205 (Version 1)
Quarter: 2013Q1

REPORT INFORMATION
  Report Type: Spontaneous
  Country: US (occurrence: US)
  Receive Date: 20130201
  Receipt Date: 20130201
  Transmission Date: 20140127
  Serious: Yes (Other)
  Sender: FDA-Public Use
  Company Number: US-ABBOTT-12P-163-1019899-00

PATIENT
  Sex: 0

DRUGS (1)
  1. HUMIRA 40MG/0.4ML [Suspect]
     Indication: PRODUCT USED FOR UNKNOWN INDICATION

REACTIONS (3)
  - Lupus-like syndrome [Unknown]
  - Arthropathy [Not Recovered/Not Resolved]
  - Muscle disorder [Not Recovered/Not Resolved]
